FAERS Safety Report 9555158 (Version 1)
Quarter: 2013Q3

REPORT INFORMATION
  Report Type: Spontaneous
  Country: US (occurrence: None)
  Receive Date: 20130815
  Receipt Date: 20130815
  Transmission Date: 20140515
  Serious: Yes (Other)
  Sender: FDA-Public Use
  Company Number: ADR-2012-02194

PATIENT
  Sex: Female

DRUGS (5)
  1. BACLOFEN [Suspect]
     Indication: PAIN
  2. DILAUDID (HYDROMORPHONE) [Concomitant]
  3. BUPIVACAINE [Concomitant]
  4. CLONIDINE [Concomitant]
  5. SUFENTANIL INTRATHECAL [Concomitant]

REACTIONS (1)
  - Pain [None]
